FAERS Safety Report 15736696 (Version 1)
Quarter: 2018Q4

REPORT INFORMATION
  Report Type: Spontaneous
  Country: US (occurrence: US)
  Receive Date: 20181204
  Receipt Date: 20181204
  Transmission Date: 20190205
  Serious: Yes (Other)
  Sender: FDA-Public Use
  Company Number: None

PATIENT
  Age: 36 Year
  Sex: Female
  Weight: 112.5 kg

DRUGS (1)
  1. NIFEDIPINE. [Suspect]
     Active Substance: NIFEDIPINE
     Indication: HYPERTENSION
     Route: 048
     Dates: start: 20181202, end: 20181202

REACTIONS (5)
  - Asthenia [None]
  - Gait disturbance [None]
  - Headache [None]
  - Heart rate increased [None]
  - Dysstasia [None]

NARRATIVE: CASE EVENT DATE: 20181202
